FAERS Safety Report 10039131 (Version 1)
Quarter: 2014Q1

REPORT INFORMATION
  Report Type: Spontaneous
  Country: US (occurrence: None)
  Receive Date: 20140306
  Receipt Date: 20140306
  Transmission Date: 20141002
  Serious: Yes (Hospitalization)
  Sender: FDA-Public Use
  Company Number: 163-21880-13073136

PATIENT
  Age: 64 Year
  Sex: Male

DRUGS (8)
  1. REVLIMID [Suspect]
     Indication: PLASMA CELL MYELOMA
     Route: 048
     Dates: start: 200910
  2. LISINOPRIL (LISINOPRIL) [Concomitant]
  3. LEXAPRO (ESCITALOPRAM OXALATE) [Concomitant]
  4. FLOMAX (TAMSULOSIN HYDROCHLORIDE) [Concomitant]
  5. CALCIUM PLUS VITAMIN D [Concomitant]
  6. ATENOLOL (ATENOLOL) [Concomitant]
  7. ASPIRIN LOW DOSE [Concomitant]
  8. ACYCLOVIR [Concomitant]

REACTIONS (1)
  - Pulmonary embolism [None]
